FAERS Safety Report 15323366 (Version 3)
Quarter: 2021Q4

REPORT INFORMATION
  Report Type: Spontaneous
  Country: US (occurrence: US)
  Receive Date: 20180827
  Receipt Date: 20211001
  Transmission Date: 20220303
  Serious: Yes (Other)
  Sender: FDA-Public Use
  Company Number: US-ELI_LILLY_AND_COMPANY-US201805009247

PATIENT
  Sex: Female

DRUGS (1)
  1. CYMBALTA [Suspect]
     Active Substance: DULOXETINE HYDROCHLORIDE
     Indication: Product used for unknown indication
     Dosage: UNK UNK, UNKNOWN
     Route: 048
     Dates: start: 2013, end: 2017

REACTIONS (10)
  - Mental impairment [Unknown]
  - Amnesia [Unknown]
  - Thinking abnormal [Unknown]
  - General physical health deterioration [Unknown]
  - Pain [Unknown]
  - Withdrawal syndrome [Not Recovered/Not Resolved]
  - Vomiting [Unknown]
  - Weight increased [Unknown]
  - Vertigo [Unknown]
  - Nausea [Unknown]
